FAERS Safety Report 8834672 (Version 1)
Quarter: 2012Q4

REPORT INFORMATION
  Report Type: 
  Country: FR (occurrence: FR)
  Receive Date: 20121010
  Receipt Date: 20121010
  Transmission Date: 20130627
  Serious: Yes (Hospitalization)
  Sender: FDA-Public Use
  Company Number: FR-ROCHE-1139109

PATIENT
  Age: 59 Year
  Sex: Male

DRUGS (6)
  1. ROCEPHINE [Suspect]
     Indication: LUNG DISORDER
     Route: 042
     Dates: end: 20120712
  2. OFLOCET (FRANCE) [Interacting]
     Indication: LUNG DISORDER
     Route: 048
     Dates: end: 20120707
  3. OFLOCET (FRANCE) [Interacting]
     Route: 065
     Dates: end: 20120712
  4. PROGRAF [Interacting]
     Indication: PRODUCT USED FOR UNKNOWN INDICATION
     Route: 048
     Dates: start: 20120705
  5. PROGRAF [Interacting]
     Route: 065
  6. CELLCEPT [Concomitant]

REACTIONS (2)
  - Overdose [Unknown]
  - Drug interaction [Unknown]
